FAERS Safety Report 17242473 (Version 1)
Quarter: 2020Q1

REPORT INFORMATION
  Report Type: Spontaneous
  Country: US (occurrence: US)
  Receive Date: 20200106
  Receipt Date: 20200106
  Transmission Date: 20200409
  Serious: Yes (Other)
  Sender: FDA-Public Use
  Company Number: None

PATIENT
  Age: 60 Year
  Sex: Male

DRUGS (9)
  1. XARELTO [Concomitant]
     Active Substance: RIVAROXABAN
  2. CELECOXIB. [Concomitant]
     Active Substance: CELECOXIB
  3. HYDROCHLOROT [Concomitant]
     Active Substance: HYDROCHLOROTHIAZIDE
  4. PANTOPRAZOLE [Concomitant]
     Active Substance: PANTOPRAZOLE
  5. ROSUVASTATIN. [Concomitant]
     Active Substance: ROSUVASTATIN
  6. COSENTYX [Suspect]
     Active Substance: SECUKINUMAB
     Indication: PSORIATIC ARTHROPATHY
     Dates: start: 20191031, end: 20200102
  7. LOSARTAN. [Concomitant]
     Active Substance: LOSARTAN
  8. PREDNISONE. [Concomitant]
     Active Substance: PREDNISONE
  9. OLMESA MEDOX [Concomitant]

REACTIONS (2)
  - Therapy cessation [None]
  - Neoplasm malignant [None]

NARRATIVE: CASE EVENT DATE: 20200102
